FAERS Safety Report 14747727 (Version 2)
Quarter: 2018Q2

REPORT INFORMATION
  Report Type: Spontaneous
  Country: CZ (occurrence: CZ)
  Receive Date: 20180411
  Receipt Date: 20180508
  Transmission Date: 20180711
  Serious: Yes (Hospitalization, Other)
  Sender: FDA-Public Use
  Company Number: PHHY2017CZ179099

PATIENT
  Age: 81 Year
  Sex: Female

DRUGS (11)
  1. METHYLPREDNISOLONE. [Suspect]
     Active Substance: METHYLPREDNISOLONE
     Indication: TOXIC EPIDERMAL NECROLYSIS
     Dosage: 10 MG/KG, QD
     Route: 065
  2. METHYLPREDNISOLONE. [Suspect]
     Active Substance: METHYLPREDNISOLONE
     Dosage: 0.3 MG/KG, QD
     Route: 065
  3. PHENYTOIN. [Suspect]
     Active Substance: PHENYTOIN
     Indication: SEIZURE
     Dosage: 15 MG/KG, QD
     Route: 065
  4. CEFTRIAXONE. [Suspect]
     Active Substance: CEFTRIAXONE
     Indication: TRACHEOBRONCHITIS
     Dosage: UNK
     Route: 065
  5. CEFTRIAXONE. [Suspect]
     Active Substance: CEFTRIAXONE
     Indication: SEPSIS
  6. OXACILLIN [Suspect]
     Active Substance: OXACILLIN SODIUM
     Indication: TRACHEOBRONCHITIS
  7. HUMAN IMMUNOGLOBULIN [Suspect]
     Active Substance: HUMAN IMMUNOGLOBULIN G
     Indication: TOXIC EPIDERMAL NECROLYSIS
     Dosage: 800 MG/KG, UNK
     Route: 042
  8. VALPROATE SODIUM. [Suspect]
     Active Substance: VALPROATE SODIUM
     Indication: SEIZURE
     Dosage: 20 MG/KG, QD
     Route: 065
  9. OXACILLIN [Suspect]
     Active Substance: OXACILLIN SODIUM
     Indication: SEPSIS
     Dosage: UNK
     Route: 065
  10. CICLOSPORIN [Concomitant]
     Active Substance: CYCLOSPORINE
     Indication: TOXIC EPIDERMAL NECROLYSIS
     Dosage: 5 MG/KG, QD
     Route: 065
  11. HUMAN IMMUNOGLOBULIN [Suspect]
     Active Substance: HUMAN IMMUNOGLOBULIN G
     Dosage: 200 MG/KG, UNK
     Route: 042

REACTIONS (4)
  - Toxic epidermal necrolysis [Recovering/Resolving]
  - Dermatitis bullous [Unknown]
  - Erythema [Unknown]
  - Drug ineffective for unapproved indication [Unknown]
